FAERS Safety Report 24003918 (Version 2)
Quarter: 2025Q2

REPORT INFORMATION
  Report Type: Spontaneous
  Country: ES (occurrence: ES)
  Receive Date: 20240624
  Receipt Date: 20250619
  Transmission Date: 20250717
  Serious: Yes (Other)
  Sender: AUROBINDO
  Company Number: ES-GLENMARK PHARMACEUTICALS-2024GMK091304

PATIENT
  Age: 49 Year
  Sex: Female

DRUGS (6)
  1. CITALOPRAM [Suspect]
     Active Substance: CITALOPRAM
     Indication: Product used for unknown indication
     Dosage: 40 MILLIGRAM, ONCE A DAY
     Route: 065
  2. OLANZAPINE [Suspect]
     Active Substance: OLANZAPINE
     Indication: Product used for unknown indication
     Dosage: 15 MILLIGRAM, ONCE A DAY
     Route: 065
  3. BIPERIDEN [Suspect]
     Active Substance: BIPERIDEN
     Indication: Musculoskeletal stiffness
     Dosage: 5 MILLIGRAM, ONCE A DAY
     Route: 065
  4. BIPERIDEN [Suspect]
     Active Substance: BIPERIDEN
     Dosage: 2 MILLIGRAM, FOUR TIMES/DAY
     Route: 065
  5. LORAZEPAM [Concomitant]
     Active Substance: LORAZEPAM
     Indication: Product used for unknown indication
     Dosage: 1 MILLIGRAM, 3 TIMES A DAY
     Route: 065
  6. NEOSTIGMINE [Suspect]
     Active Substance: NEOSTIGMINE
     Indication: Anticholinergic syndrome
     Route: 042

REACTIONS (5)
  - Hyperthermia [Unknown]
  - Anticholinergic syndrome [Recovered/Resolved]
  - Autonomic nervous system imbalance [Unknown]
  - Serotonin syndrome [Unknown]
  - Neuroleptic malignant syndrome [Unknown]
